FAERS Safety Report 7437571-7 (Version None)
Quarter: 2011Q2

REPORT INFORMATION
  Report Type: 
  Country: None (occurrence: None)
  Receive Date: 20110426
  Receipt Date: 20110414
  Transmission Date: 20111010
  Serious: Yes (Hospitalization, Other)
  Sender: FDA-Public Use
  Company Number: US-ELI_LILLY_AND_COMPANY-US201006006069

PATIENT
  Sex: Female
  Weight: 49.433 kg

DRUGS (18)
  1. FORTEO [Suspect]
     Dosage: 20 UG, QD
     Route: 065
  2. SUCRALFATE [Concomitant]
     Dosage: UNK, DAILY (1/D)
  3. MYLANTA [Concomitant]
  4. SYNTHROID [Concomitant]
     Dosage: UNK, DAILY (1/D)
  5. PRAVACHOL [Concomitant]
  6. CARVEDILOL [Concomitant]
  7. MULTI-VITAMIN [Concomitant]
     Dosage: UNK, DAILY (1/D)
  8. NITROGLYCERIN [Concomitant]
     Dosage: UNK, AS NEEDED
  9. VITAMIN D [Concomitant]
     Dosage: UNK, 2/D
  10. FORTEO [Suspect]
     Indication: OSTEOPOROSIS
     Dosage: 20 UG, DAILY (1/D)
     Route: 065
  11. ASPIRIN [Concomitant]
     Dosage: 325 MG, DAILY (1/D)
  12. FORTEO [Suspect]
     Dosage: 20 UG, QD
     Route: 065
  13. FERROUS SULFATE TAB [Concomitant]
  14. LEXAPRO [Concomitant]
  15. FORTEO [Suspect]
     Dosage: 20 UG, DAILY (1/D)
     Route: 065
  16. FORTEO [Suspect]
     Dosage: 20 UG, DAILY (1/D)
     Route: 065
  17. PLAVIX [Concomitant]
     Dosage: UNK, DAILY (1/D)
  18. CALCIUM [Concomitant]
     Dosage: UNK, 2/D

REACTIONS (14)
  - LIMB INJURY [None]
  - CYSTITIS [None]
  - DIARRHOEA [None]
  - MUSCLE SPASMS [None]
  - DYSPEPSIA [None]
  - MYOCARDIAL INFARCTION [None]
  - CORONARY ARTERY DISEASE [None]
  - GASTROOESOPHAGEAL REFLUX DISEASE [None]
  - CONSTIPATION [None]
  - CONTUSION [None]
  - FATIGUE [None]
  - INJECTION SITE HAEMATOMA [None]
  - PAIN IN EXTREMITY [None]
  - INJECTION SITE PAIN [None]
